FAERS Safety Report 16932590 (Version 1)
Quarter: 2019Q4

REPORT INFORMATION
  Report Type: Spontaneous
  Country: ES (occurrence: ES)
  Receive Date: 20191017
  Receipt Date: 20191017
  Transmission Date: 20200122
  Serious: Yes (Other)
  Sender: FDA-Public Use
  Company Number: NVSC2019ES001914

PATIENT
  Sex: Female

DRUGS (1)
  1. GILENYA [Suspect]
     Active Substance: FINGOLIMOD HYDROCHLORIDE
     Indication: PRODUCT USED FOR UNKNOWN INDICATION
     Route: 065

REACTIONS (12)
  - Thrombocytopenia [Recovered/Resolved]
  - Leukopenia [Recovered/Resolved]
  - Neutropenia [Recovered/Resolved]
  - Abdominal pain upper [Recovered/Resolved]
  - Lymphopenia [Recovered/Resolved]
  - Normochromic anaemia [Recovered/Resolved]
  - Fatigue [Recovered/Resolved]
  - Normocytic anaemia [Recovered/Resolved]
  - Night sweats [Recovered/Resolved]
  - Hepatosplenomegaly [Recovered/Resolved]
  - Pyrexia [Recovered/Resolved]
  - Visceral leishmaniasis [Recovered/Resolved]
